FAERS Safety Report 8071505-X (Version None)
Quarter: 2012Q1

REPORT INFORMATION
  Report Type: 
  Country: None (occurrence: None)
  Receive Date: 20120125
  Receipt Date: 20120118
  Transmission Date: 20120608
  Serious: Yes (Other)
  Sender: FDA-Public Use
  Company Number: US-ASTRAZENECA-2012SE04078

PATIENT
  Age: 65 Year
  Sex: Female

DRUGS (5)
  1. GLUCOPHAGE [Concomitant]
  2. LYRICA [Concomitant]
  3. PROAIR HFA [Concomitant]
  4. SYMBICORT [Suspect]
     Route: 055
  5. DIAZEPAM [Concomitant]

REACTIONS (4)
  - FALL [None]
  - MALAISE [None]
  - NECK INJURY [None]
  - DYSSTASIA [None]
